FAERS Safety Report 5218385-5 (Version None)
Quarter: 2007Q1

REPORT INFORMATION
  Report Type: 
  Country: None (occurrence: None)
  Receive Date: 20070124
  Receipt Date: 20070112
  Transmission Date: 20070707
  Serious: Yes (Other)
  Sender: FDA-Public Use
  Company Number: FR-PFIZER INC-2007004377

PATIENT
  Age: 72 Year
  Sex: Female

DRUGS (2)
  1. NEURONTIN [Suspect]
     Indication: NEUROPATHY
  2. LYRICA [Suspect]
     Indication: NEUROPATHY
     Dates: start: 20070111, end: 20070111

REACTIONS (3)
  - FLATULENCE [None]
  - TACHYCARDIA [None]
  - WEIGHT INCREASED [None]
